FAERS Safety Report 9291829 (Version 1)
Quarter: 2013Q2

REPORT INFORMATION
  Report Type: Spontaneous
  Country: US (occurrence: US)
  Receive Date: 20130516
  Receipt Date: 20130516
  Transmission Date: 20140414
  Serious: No
  Sender: FDA-Public Use
  Company Number: US-BIOGENIDEC-2013BI042672

PATIENT
  Age: 58 Year
  Sex: Female

DRUGS (2)
  1. TYSABRI [Suspect]
     Indication: MULTIPLE SCLEROSIS
     Route: 042
     Dates: start: 20120203
  2. AVONEX [Concomitant]
     Indication: MULTIPLE SCLEROSIS
     Route: 030
     Dates: start: 20060701

REACTIONS (7)
  - Anxiety [Unknown]
  - Emotional distress [Unknown]
  - Thinking abnormal [Recovered/Resolved]
  - General physical health deterioration [Recovered/Resolved]
  - Fear [Recovered/Resolved]
  - Migraine [Recovered/Resolved]
  - Fatigue [Unknown]
